FAERS Safety Report 13983579 (Version 1)
Quarter: 2017Q3

REPORT INFORMATION
  Report Type: Spontaneous
  Country: GB (occurrence: GB)
  Receive Date: 20170918
  Receipt Date: 20170918
  Transmission Date: 20171128
  Serious: Yes (Hospitalization, Other)
  Sender: FDA-Public Use
  Company Number: GB-MYLANLABS-2017M1054144

PATIENT
  Age: 22 Year
  Sex: Male

DRUGS (1)
  1. CLOZARIL [Suspect]
     Active Substance: CLOZAPINE
     Indication: SCHIZOPHRENIA
     Dosage: UNK
     Route: 048
     Dates: start: 20161213

REACTIONS (4)
  - Appendicitis [Recovering/Resolving]
  - Platelet count increased [Recovering/Resolving]
  - Therapy cessation [Unknown]
  - Sepsis [Unknown]

NARRATIVE: CASE EVENT DATE: 20170822
